FAERS Safety Report 11707275 (Version 1)
Quarter: 2015Q4

REPORT INFORMATION
  Report Type: Spontaneous
  Country: US (occurrence: US)
  Receive Date: 20151106
  Receipt Date: 20151106
  Transmission Date: 20160304
  Serious: Yes (Death, Hospitalization, Other)
  Sender: FDA-Public Use
  Company Number: US-SUNOVION-2015SUN000796

PATIENT
  Age: 73 Year
  Sex: Male

DRUGS (1)
  1. BROVANA [Suspect]
     Active Substance: ARFORMOTEROL TARTRATE
     Indication: LUNG DISORDER
     Dosage: 15 MCG/2ML
     Route: 055

REACTIONS (4)
  - Inappropriate schedule of drug administration [Unknown]
  - Off label use [Unknown]
  - Death [Fatal]
  - Loss of consciousness [Unknown]

NARRATIVE: CASE EVENT DATE: 20150914
